FAERS Safety Report 20430328 (Version 1)
Quarter: 2022Q1

REPORT INFORMATION
  Report Type: Spontaneous
  Country: US (occurrence: None)
  Receive Date: 20220203
  Receipt Date: 20220203
  Transmission Date: 20220423
  Serious: Yes (Hospitalization)
  Sender: FDA-Public Use
  Company Number: None

PATIENT
  Age: 40 Year
  Sex: Female

DRUGS (3)
  1. SOTROVIMAB [Suspect]
     Active Substance: SOTROVIMAB
     Indication: COVID-19 treatment
     Dosage: OTHER FREQUENCY : ONCE;?
     Route: 041
  2. NS [Concomitant]
     Dates: start: 20220131, end: 20220131
  3. SODIUM CHLORIDE [Concomitant]
     Active Substance: SODIUM CHLORIDE
     Dates: start: 20220131, end: 20220131

REACTIONS (5)
  - Tunnel vision [None]
  - Blood pressure decreased [None]
  - Infusion related reaction [None]
  - Presyncope [None]
  - Cold sweat [None]

NARRATIVE: CASE EVENT DATE: 20220131
